FAERS Safety Report 9129308 (Version 1)
Quarter: 2013Q1

REPORT INFORMATION
  Report Type: Report from Study
  Country: DE (occurrence: DE)
  Receive Date: 20130125
  Receipt Date: 20130125
  Transmission Date: 20140127
  Serious: Yes (Hospitalization)
  Sender: FDA-Public Use
  Company Number: DE-ABBOTT-13P-062-1037735-00

PATIENT
  Age: 23 Year
  Sex: Male
  Weight: 80 kg

DRUGS (4)
  1. HUMIRA [Suspect]
     Indication: CROHN^S DISEASE
     Route: 058
     Dates: start: 20101118, end: 201102
  2. HUMIRA [Suspect]
     Route: 058
     Dates: start: 201103, end: 201206
  3. HUMIRA [Suspect]
     Route: 058
     Dates: start: 201207
  4. AZATHIOPRINE [Concomitant]
     Indication: CROHN^S DISEASE
     Dates: start: 2012

REACTIONS (1)
  - Intestinal stenosis [Unknown]
